FAERS Safety Report 17023867 (Version 2)
Quarter: 2023Q2

REPORT INFORMATION
  Report Type: Other
  Country: US (occurrence: None)
  Receive Date: 20191113
  Receipt Date: 20230604
  Transmission Date: 20230721
  Serious: Yes (Hospitalization)
  Sender: FDA-Public Use
  Company Number: US-ROCHE-2213249

PATIENT
  Age: 65 Year
  Sex: Male
  Weight: 98.518 kg

DRUGS (13)
  1. OCREVUS [Suspect]
     Active Substance: OCRELIZUMAB
     Indication: Relapsing multiple sclerosis
     Dosage: LATER WAS ADMINISTERED AT 600 MG EVERY 6 MONTHS
     Route: 042
     Dates: start: 201710
  2. OCREVUS [Suspect]
     Active Substance: OCRELIZUMAB
     Route: 042
     Dates: start: 20180626
  3. AMANTADINE [Concomitant]
     Active Substance: AMANTADINE
     Indication: Muscle spasms
     Dosage: YES
  4. METOPROLOL [Concomitant]
     Active Substance: METOPROLOL
     Dosage: YES
  5. CLOPIDOGREL [Concomitant]
     Active Substance: CLOPIDOGREL BISULFATE
     Indication: Anticoagulant therapy
     Dosage: YES
  6. TIZANIDINE [Concomitant]
     Active Substance: TIZANIDINE
     Dosage: YES
  7. BACLOFEN [Concomitant]
     Active Substance: BACLOFEN
     Indication: Muscle spasms
     Dosage: PRN ;ONGOING: YES
  8. AMITIZA [Concomitant]
     Active Substance: LUBIPROSTONE
     Dosage: YES
  9. GABAPENTIN [Concomitant]
     Active Substance: GABAPENTIN
     Indication: Pain
     Dosage: YES
  10. ATORVASTATIN [Concomitant]
     Active Substance: ATORVASTATIN
     Indication: Blood cholesterol increased
     Dosage: YES
  11. TRIAMTERENE [Concomitant]
     Active Substance: TRIAMTERENE
     Dosage: 37.5MG ;ONGOING: YES
  12. ASPIRIN [Concomitant]
     Active Substance: ASPIRIN
     Dosage: YES
  13. FINASTERIDE [Concomitant]
     Active Substance: FINASTERIDE
     Dosage: YES

REACTIONS (2)
  - Cerebrovascular accident [Unknown]
  - Pneumonia [Not Recovered/Not Resolved]

NARRATIVE: CASE EVENT DATE: 20180930
